FAERS Safety Report 16895213 (Version 2)
Quarter: 2019Q4

REPORT INFORMATION
  Report Type: Spontaneous
  Country: US (occurrence: US)
  Receive Date: 20191008
  Receipt Date: 20191015
  Transmission Date: 20200122
  Serious: Yes (Other)
  Sender: FDA-Public Use
  Company Number: US-HORIZON-DUE-0555-2019

PATIENT
  Age: 55 Year
  Sex: Female

DRUGS (1)
  1. DUEXIS [Suspect]
     Active Substance: FAMOTIDINE\IBUPROFEN
     Indication: PROCEDURAL PAIN
     Dosage: 1 TABLET PO ONCE DAILY PRN
     Route: 048

REACTIONS (3)
  - Off label use [Unknown]
  - Inability to afford medication [Unknown]
  - Sinus operation [Unknown]
